FAERS Safety Report 4799815-X (Version None)
Quarter: 2005Q4

REPORT INFORMATION
  Report Type: 
  Country: None (occurrence: None)
  Receive Date: 20051011
  Receipt Date: 20051011
  Transmission Date: 20060501
  Serious: Yes (Hospitalization)
  Sender: FDA-Public Use
  Company Number: None

PATIENT
  Sex: Male
  Weight: 87.9978 kg

DRUGS (3)
  1. PENTOSTATIN [Suspect]
     Indication: NEOPLASM MALIGNANT
     Dosage: [PRIOR TO ADMISSION]
  2. LOPRESSOR [Concomitant]
  3. ASPIRIN [Concomitant]

REACTIONS (3)
  - DYSPHAGIA [None]
  - ORAL INTAKE REDUCED [None]
  - STOMATITIS [None]
